FAERS Safety Report 25586805 (Version 1)
Quarter: 2025Q3

REPORT INFORMATION
  Report Type: Spontaneous
  Country: CA (occurrence: CA)
  Receive Date: 20250721
  Receipt Date: 20250721
  Transmission Date: 20251020
  Serious: Yes (Other)
  Sender: MYLAN
  Company Number: CA-MYLANLABS-2025M1060454

PATIENT
  Sex: Female

DRUGS (20)
  1. ATORVASTATIN CALCIUM [Suspect]
     Active Substance: ATORVASTATIN CALCIUM
     Indication: Product used for unknown indication
  2. ATORVASTATIN CALCIUM [Suspect]
     Active Substance: ATORVASTATIN CALCIUM
     Route: 065
  3. ATORVASTATIN CALCIUM [Suspect]
     Active Substance: ATORVASTATIN CALCIUM
     Route: 065
  4. ATORVASTATIN CALCIUM [Suspect]
     Active Substance: ATORVASTATIN CALCIUM
  5. VITAMIN C [Suspect]
     Active Substance: ASCORBIC ACID
     Indication: Product used for unknown indication
  6. VITAMIN C [Suspect]
     Active Substance: ASCORBIC ACID
     Route: 065
  7. VITAMIN C [Suspect]
     Active Substance: ASCORBIC ACID
     Route: 065
  8. VITAMIN C [Suspect]
     Active Substance: ASCORBIC ACID
  9. IRBESARTAN [Suspect]
     Active Substance: IRBESARTAN
     Indication: Product used for unknown indication
  10. IRBESARTAN [Suspect]
     Active Substance: IRBESARTAN
     Route: 048
  11. IRBESARTAN [Suspect]
     Active Substance: IRBESARTAN
     Route: 048
  12. IRBESARTAN [Suspect]
     Active Substance: IRBESARTAN
  13. VITAMIN D [Suspect]
     Active Substance: VITAMIN D NOS
     Indication: Product used for unknown indication
  14. VITAMIN D [Suspect]
     Active Substance: VITAMIN D NOS
     Route: 065
  15. VITAMIN D [Suspect]
     Active Substance: VITAMIN D NOS
     Route: 065
  16. VITAMIN D [Suspect]
     Active Substance: VITAMIN D NOS
  17. ALBUTEROL [Concomitant]
     Active Substance: ALBUTEROL
  18. ALBUTEROL [Concomitant]
     Active Substance: ALBUTEROL
     Route: 065
  19. ALBUTEROL [Concomitant]
     Active Substance: ALBUTEROL
     Route: 065
  20. ALBUTEROL [Concomitant]
     Active Substance: ALBUTEROL

REACTIONS (8)
  - Pruritus [Recovering/Resolving]
  - Oral allergy syndrome [Recovering/Resolving]
  - Neurotoxicity [Recovering/Resolving]
  - Dysgeusia [Recovering/Resolving]
  - Urticaria [Recovering/Resolving]
  - Dyspepsia [Recovering/Resolving]
  - Product taste abnormal [Recovering/Resolving]
  - Product quality issue [Recovering/Resolving]
